FAERS Safety Report 21123712 (Version 1)
Quarter: 2022Q3

REPORT INFORMATION
  Report Type: Spontaneous
  Country: US (occurrence: US)
  Receive Date: 20220725
  Receipt Date: 20220725
  Transmission Date: 20221027
  Serious: Yes (Hospitalization)
  Sender: FDA-Public Use
  Company Number: US-SUN PHARMACEUTICAL INDUSTRIES LTD-2022R1-345137

PATIENT
  Age: 15 Year
  Sex: Male

DRUGS (10)
  1. BACLOFEN [Suspect]
     Active Substance: BACLOFEN
     Indication: Dystonia
     Dosage: 745.2 MICROGRAM, DAILY
     Route: 037
     Dates: start: 201606
  2. BACLOFEN [Suspect]
     Active Substance: BACLOFEN
     Dosage: 819.72 MICROGRAM, DAILY
     Route: 037
  3. BACLOFEN [Suspect]
     Active Substance: BACLOFEN
     Dosage: 1100 MICROGRAM, DAILY
     Route: 037
  4. BACLOFEN [Suspect]
     Active Substance: BACLOFEN
     Dosage: 100 MICROGRAM, DAILY
     Route: 037
  5. BACLOFEN [Suspect]
     Active Substance: BACLOFEN
     Dosage: 275 MICROGRAM, DAILY
     Route: 037
  6. BACLOFEN [Suspect]
     Active Substance: BACLOFEN
     Dosage: 375.4 MICROGRAM, DAILY
     Route: 037
  7. BACLOFEN [Suspect]
     Active Substance: BACLOFEN
     Dosage: 230.2 MICROGRAM, DAILY
     Route: 037
  8. BACLOFEN [Suspect]
     Active Substance: BACLOFEN
     Dosage: 253.2 MICROGRAM, DAILY
     Route: 037
  9. BACLOFEN [Suspect]
     Active Substance: BACLOFEN
     Dosage: 178.2 MICROGRAM, DAILY
     Route: 037
  10. BACLOFEN [Suspect]
     Active Substance: BACLOFEN
     Dosage: 150 MICROGRAM, DAILY
     Route: 037

REACTIONS (1)
  - Abnormal behaviour [Recovering/Resolving]
